FAERS Safety Report 9863549 (Version 5)
Quarter: 2014Q1

REPORT INFORMATION
  Report Type: Spontaneous
  Country: US (occurrence: US)
  Receive Date: 20140203
  Receipt Date: 20140324
  Transmission Date: 20141002
  Serious: Yes (Other)
  Sender: FDA-Public Use
  Company Number: US-OTSUKA-US-2014-10200

PATIENT
  Sex: 0

DRUGS (12)
  1. ABILIFY MAINTENA [Suspect]
     Indication: SCHIZOPHRENIA
     Dosage: 400 MG MILLIGRAM(S), SINGLE
     Route: 030
     Dates: start: 20140120
  2. ABILIFY MAINTENA [Suspect]
     Indication: BIPOLAR DISORDER
     Dosage: 300 MG MILLIGRAM(S), SINGLE
     Route: 030
     Dates: start: 20140217
  3. ABILIFY [Concomitant]
     Indication: SCHIZOPHRENIA
     Dosage: 5 MG MILLIGRAM(S), QD
     Route: 048
     Dates: start: 20131202, end: 20131216
  4. ABILIFY [Concomitant]
     Indication: BIPOLAR DISORDER
     Dosage: 2 MG MILLIGRAM(S), QD
     Route: 048
     Dates: start: 20131217, end: 20131229
  5. ABILIFY [Concomitant]
     Dosage: 5 MG MILLIGRAM(S), QD
     Route: 048
     Dates: start: 20131230, end: 20140103
  6. ABILIFY [Concomitant]
     Dosage: 10 MG MILLIGRAM(S), QD
     Route: 048
     Dates: start: 20140104
  7. ABILIFY [Concomitant]
     Dosage: 5 MG MILLIGRAM(S), QD
     Route: 048
     Dates: end: 20140130
  8. WELLBUTRIN [Concomitant]
     Indication: DEPRESSION
     Dosage: UNK
     Dates: start: 20140131
  9. KLONOPIN [Concomitant]
     Indication: PRODUCT USED FOR UNKNOWN INDICATION
     Dosage: UNK
  10. DIVALPROEX [Concomitant]
     Indication: PRODUCT USED FOR UNKNOWN INDICATION
     Dosage: UNK
  11. LITHIUM [Concomitant]
     Indication: PRODUCT USED FOR UNKNOWN INDICATION
     Dosage: UNK
  12. RISPERDAL [Concomitant]
     Indication: PSYCHIATRIC SYMPTOM
     Dosage: 1 MG MILLIGRAM(S), UNK
     Route: 048

REACTIONS (4)
  - Depression [Recovering/Resolving]
  - Psychotic behaviour [Recovering/Resolving]
  - Therapeutic response decreased [Recovering/Resolving]
  - Paranoia [Recovering/Resolving]
